FAERS Safety Report 5259517-2 (Version None)
Quarter: 2007Q1

REPORT INFORMATION
  Report Type: 
  Country: None (occurrence: None)
  Receive Date: 20070306
  Receipt Date: 20070223
  Transmission Date: 20070707
  Serious: Yes (Other)
  Sender: FDA-Public Use
  Company Number: 2007SP003671

PATIENT
  Sex: Female

DRUGS (1)
  1. PROVENTIL-HFA [Suspect]
     Indication: ASTHMA
     Dosage: PO
     Route: 048
     Dates: start: 20060101, end: 20070101

REACTIONS (5)
  - ASTHMA [None]
  - CHOKING [None]
  - CONDITION AGGRAVATED [None]
  - DRUG INEFFECTIVE [None]
  - NERVOUSNESS [None]
